FAERS Safety Report 9677561 (Version 1)
Quarter: 2013Q4

REPORT INFORMATION
  Report Type: Spontaneous
  Country: US (occurrence: None)
  Receive Date: 20131107
  Receipt Date: 20131107
  Transmission Date: 20140711
  Serious: Yes (Life-Threatening, Disabling)
  Sender: FDA-Public Use
  Company Number: None

PATIENT
  Age: 12 Year
  Sex: Female
  Weight: 77.11 kg

DRUGS (2)
  1. GARDASIL [Suspect]
     Indication: PROPHYLAXIS
     Dosage: INTO THE MUSCLE
     Dates: start: 20130807, end: 20130807
  2. GARDASIL [Suspect]
     Indication: PAPILLOMA VIRAL INFECTION
     Dosage: INTO THE MUSCLE
     Dates: start: 20130807, end: 20130807

REACTIONS (4)
  - Pain [None]
  - Myalgia [None]
  - Depression [None]
  - Suicidal ideation [None]
